FAERS Safety Report 10195862 (Version 1)
Quarter: 2014Q2

REPORT INFORMATION
  Report Type: Spontaneous
  Country: US (occurrence: None)
  Receive Date: 20140522
  Receipt Date: 20140522
  Transmission Date: 20141212
  Serious: Yes (Death)
  Sender: FDA-Public Use
  Company Number: DAV-AE-AMO-14-02

PATIENT
  Age: 18 Year
  Sex: Female
  Weight: 71 kg

DRUGS (1)
  1. AMOXICILLIN [Suspect]
     Indication: WOUND
     Dosage: UNKNOWN X5 DAYS, UNKNOWN

REACTIONS (11)
  - Allergic myocarditis [None]
  - Eosinophilic myocarditis [None]
  - Drug hypersensitivity [None]
  - Loss of consciousness [None]
  - Nausea [None]
  - Vomiting [None]
  - Dyspnoea [None]
  - Sudden death [None]
  - Cyanosis [None]
  - Oedema peripheral [None]
  - Visceral congestion [None]
